FAERS Safety Report 10779139 (Version 1)
Quarter: 2015Q1

REPORT INFORMATION
  Report Type: Spontaneous
  Country: PH (occurrence: PH)
  Receive Date: 20150210
  Receipt Date: 20150210
  Transmission Date: 20150721
  Serious: Yes (Life-Threatening, Other)
  Sender: FDA-Public Use
  Company Number: PH-JNJFOC-20150201147

PATIENT
  Sex: Male
  Weight: 60 kg

DRUGS (4)
  1. FONDAPARINUX [Interacting]
     Active Substance: FONDAPARINUX
     Indication: PRODUCT USED FOR UNKNOWN INDICATION
     Route: 065
  2. CLOPIDOGREL [Interacting]
     Active Substance: CLOPIDOGREL BISULFATE
     Indication: CEREBROVASCULAR ACCIDENT PROPHYLAXIS
     Route: 048
  3. XARELTO [Suspect]
     Active Substance: RIVAROXABAN
     Indication: ATRIAL FIBRILLATION
     Route: 048
     Dates: start: 201501, end: 20150127
  4. XARELTO [Suspect]
     Active Substance: RIVAROXABAN
     Indication: CEREBROVASCULAR ACCIDENT PROPHYLAXIS
     Route: 048
     Dates: start: 201501, end: 20150127

REACTIONS (8)
  - Asthenia [Unknown]
  - Hydrocephalus [Unknown]
  - Subdural haematoma [Unknown]
  - Headache [Unknown]
  - Cerebellar haemorrhage [Unknown]
  - Somnolence [Unknown]
  - Drug interaction [Unknown]
  - Stupor [Unknown]

NARRATIVE: CASE EVENT DATE: 20150127
